FAERS Safety Report 4528361-3 (Version None)
Quarter: 2004Q4

REPORT INFORMATION
  Report Type: 
  Country: None (occurrence: None)
  Receive Date: 20041126
  Receipt Date: 20040726
  Transmission Date: 20050328
  Serious: Yes (Hospitalization)
  Sender: FDA-Public Use
  Company Number: 2004US002219

PATIENT
  Age: 40 Year
  Sex: Female
  Weight: 55.3 kg

DRUGS (7)
  1. ALOXI [Suspect]
     Indication: PROPHYLAXIS OF NAUSEA AND VOMITING
     Dosage: 0.25 MG, SINGLE, IV BOLUS
     Route: 040
     Dates: start: 20040723, end: 20040723
  2. ALOXI [Suspect]
     Indication: PROPHYLAXIS OF NAUSEA AND VOMITING
     Dosage: 0.25 MG, SINGLE, INTRAVENOUS
     Route: 042
     Dates: start: 20040611, end: 20040611
  3. ALOXI [Suspect]
     Indication: PROPHYLAXIS OF NAUSEA AND VOMITING
     Dosage: 0.25 MG, SINGLE, INTRAVENOUS
     Route: 042
     Dates: start: 20040702, end: 20040702
  4. DEXAMETHASONE [Concomitant]
  5. COMPAZINE [Concomitant]
  6. DOXORUBICIN HCL [Concomitant]
  7. CYCLOPHOSPHAMIDE [Concomitant]

REACTIONS (3)
  - DRUG INEFFECTIVE [None]
  - NAUSEA [None]
  - VOMITING [None]
